FAERS Safety Report 7217292-6 (Version None)
Quarter: 2010Q4

REPORT INFORMATION
  Report Type: 
  Country: None (occurrence: None)
  Receive Date: 20101230
  Receipt Date: 20101220
  Transmission Date: 20110411
  Serious: Yes (Life-Threatening, Hospitalization, Disabling, Other)
  Sender: FDA-Public Use
  Company Number: 2010SP065534

PATIENT
  Age: 41 Year
  Sex: Female

DRUGS (5)
  1. ASMANEX TWISTHALER [Suspect]
     Indication: BRONCHITIS
     Dosage: 2 DF; QD
     Dates: end: 20101217
  2. NASONEX [Suspect]
     Indication: BRONCHITIS
     Dosage: 2 DF;QD
  3. AVELOX [Suspect]
     Indication: BRONCHITIS
     Dosage: 400 MG;QD
     Dates: end: 20101219
  4. COSPOT [Concomitant]
  5. ALPHAGAN [Concomitant]

REACTIONS (9)
  - ABDOMINAL PAIN [None]
  - BLOOD PRESSURE DECREASED [None]
  - BOWEL MOVEMENT IRREGULARITY [None]
  - HOT FLUSH [None]
  - LIP SWELLING [None]
  - OEDEMA PERIPHERAL [None]
  - RASH [None]
  - SUNBURN [None]
  - VOMITING [None]
